FAERS Safety Report 8011969-0 (Version None)
Quarter: 2011Q4

REPORT INFORMATION
  Report Type: 
  Country: None (occurrence: None)
  Receive Date: 20111228
  Receipt Date: 20111222
  Transmission Date: 20120403
  Serious: Yes (Other)
  Sender: FDA-Public Use
  Company Number: US-GLAXOSMITHKLINE-A0950646A

PATIENT
  Age: 79 Year
  Sex: Female
  Weight: 62.7 kg

DRUGS (10)
  1. PROMACTA [Suspect]
     Indication: IDIOPATHIC THROMBOCYTOPENIC PURPURA
     Dosage: 50MG PER DAY
     Route: 048
     Dates: start: 20110823, end: 20111020
  2. KLOR-CON [Concomitant]
     Route: 048
  3. HYDROCHLOROTHIAZIDE [Concomitant]
     Dosage: 25MG PER DAY
  4. PERCOCET [Concomitant]
  5. ZETIA [Concomitant]
     Route: 048
  6. LEVOXYL [Concomitant]
     Dosage: 25MCG PER DAY
     Route: 048
  7. METFORMIN HCL [Concomitant]
     Dosage: 1000MG PER DAY
     Route: 048
  8. ADVAIR DISKUS 100/50 [Concomitant]
  9. CLONIDINE HCL [Concomitant]
     Dosage: .2MG PER DAY
  10. LISINOPRIL AND HYDROCHLOROTHIAZIDE [Concomitant]

REACTIONS (1)
  - HEPATIC ENZYME INCREASED [None]
